FAERS Safety Report 9891473 (Version 1)
Quarter: 2014Q1

REPORT INFORMATION
  Report Type: Spontaneous
  Country: US (occurrence: None)
  Receive Date: 20140211
  Receipt Date: 20140211
  Transmission Date: 20141002
  Serious: Yes (Hospitalization)
  Sender: FDA-Public Use
  Company Number: None

PATIENT
  Age: 63 Year
  Sex: Male
  Weight: 81.8 kg

DRUGS (1)
  1. IBUPROFEN [Suspect]
     Indication: PAIN
     Route: 048
     Dates: start: 20130310, end: 20130910

REACTIONS (5)
  - Renal failure acute [None]
  - Nephropathy [None]
  - Ischaemia [None]
  - Blood urea increased [None]
  - Blood creatinine increased [None]
